FAERS Safety Report 8936262 (Version 2)
Quarter: 2013Q1

REPORT INFORMATION
  Report Type: Spontaneous
  Country: DE (occurrence: DE)
  Receive Date: 20121130
  Receipt Date: 20130226
  Transmission Date: 20140127
  Serious: Yes (Death)
  Sender: FDA-Public Use
  Company Number: DE-NAPPMUNDI-DEU-2012-0009883

PATIENT
  Sex: Male

DRUGS (3)
  1. MSI MUNDIPHARMA [Suspect]
     Indication: DYSPNOEA
     Dosage: 10 MG, UNK
     Route: 042
  2. DORMICUM [Suspect]
     Indication: PRODUCT USED FOR UNKNOWN INDICATION
     Route: 065
  3. MIDAZOLAM [Suspect]
     Indication: PRODUCT USED FOR UNKNOWN INDICATION

REACTIONS (4)
  - Death [Fatal]
  - Medication error [Fatal]
  - Off label use [Fatal]
  - Respiratory depression [None]
